FAERS Safety Report 7547052-8 (Version None)
Quarter: 2011Q2

REPORT INFORMATION
  Report Type: 
  Country: None (occurrence: None)
  Receive Date: 20110607
  Receipt Date: 20110531
  Transmission Date: 20111010
  Serious: Yes (Other)
  Sender: FDA-Public Use
  Company Number: 2011SP025345

PATIENT
  Age: 24 Year
  Sex: Female
  Weight: 80.7403 kg

DRUGS (1)
  1. IMPLANON [Suspect]
     Indication: CONTRACEPTION
     Dates: start: 20101209

REACTIONS (5)
  - HEADACHE [None]
  - MOOD SWINGS [None]
  - VISUAL IMPAIRMENT [None]
  - LIMB DISCOMFORT [None]
  - SUICIDAL IDEATION [None]
